FAERS Safety Report 13516655 (Version 2)
Quarter: 2017Q2

REPORT INFORMATION
  Report Type: Report from Study
  Country: CN (occurrence: CN)
  Receive Date: 20170505
  Receipt Date: 20170510
  Transmission Date: 20170830
  Serious: Yes (Other)
  Sender: FDA-Public Use
  Company Number: CN-ROCHE-1931285

PATIENT

DRUGS (4)
  1. ASPIRIN. [Concomitant]
     Active Substance: ASPIRIN
     Dosage: FIRST DOSE 300MG, THEN 100MG/D
     Route: 048
  2. ALTEPLASE [Suspect]
     Active Substance: ALTEPLASE
     Dosage: 10% OF TOTAL DOSE IN 10 MINUTES AND THE REST 90% SOLUBLE IN 250ML 0.9% SALINE IV DRIP
     Route: 041
  3. ASPIRIN. [Concomitant]
     Active Substance: ASPIRIN
     Route: 048
  4. ALTEPLASE [Suspect]
     Active Substance: ALTEPLASE
     Indication: CEREBROVASCULAR ACCIDENT
     Dosage: 10% OF TOTAL DOSE IN 10 MINUTES AND THE REST 90% SOLUBLE IN 250ML 0.9% SALINE IV DRIP
     Route: 042

REACTIONS (1)
  - Haemorrhage intracranial [Unknown]
